FAERS Safety Report 5272273-7 (Version None)
Quarter: 2007Q1

REPORT INFORMATION
  Report Type: 
  Country: None (occurrence: None)
  Receive Date: 20070322
  Receipt Date: 20070309
  Transmission Date: 20070707
  Serious: Yes (Other)
  Sender: FDA-Public Use
  Company Number: PHEH2007US02984

PATIENT
  Age: 53 Year
  Sex: Male

DRUGS (3)
  1. DIOVAN [Suspect]
     Indication: HYPERTENSION
     Dosage: 80MG, UNK
     Dates: start: 20061001, end: 20070310
  2. DIOVAN [Suspect]
     Dosage: 160MG, UNK
     Dates: end: 20070309
  3. ATENOLOL [Concomitant]
     Indication: HYPERTENSION
     Dosage: 100MG, UNK
     Route: 048
     Dates: start: 19970101

REACTIONS (3)
  - BLOOD PRESSURE INADEQUATELY CONTROLLED [None]
  - DRY SKIN [None]
  - KNEE OPERATION [None]
